FAERS Safety Report 11780996 (Version 1)
Quarter: 2015Q4

REPORT INFORMATION
  Report Type: Spontaneous
  Country: US (occurrence: US)
  Receive Date: 20151126
  Receipt Date: 20151126
  Transmission Date: 20160305
  Serious: No
  Sender: FDA-Public Use
  Company Number: US-HOSPIRA-2975831

PATIENT
  Age: 32 Year
  Sex: Female

DRUGS (1)
  1. BUPIVACAINE HYDROCHLORIDE. [Suspect]
     Active Substance: BUPIVACAINE HYDROCHLORIDE
     Indication: PRODUCT USED FOR UNKNOWN INDICATION

REACTIONS (4)
  - Hypoaesthesia oral [Recovered/Resolved]
  - Product package associated injury [Recovered/Resolved]
  - Accidental exposure to product [Recovered/Resolved]
  - Product closure issue [Recovered/Resolved]

NARRATIVE: CASE EVENT DATE: 20150810
